FAERS Safety Report 19319701 (Version 1)
Quarter: 2021Q2

REPORT INFORMATION
  Report Type: Spontaneous
  Country: US (occurrence: US)
  Receive Date: 20210527
  Receipt Date: 20210527
  Transmission Date: 20210717
  Serious: No
  Sender: FDA-Public Use
  Company Number: None

PATIENT
  Age: 52 Year
  Sex: Female

DRUGS (18)
  1. REMDESIVIR. [Suspect]
     Active Substance: REMDESIVIR
     Indication: COVID-19
     Dates: start: 20210502, end: 20210509
  2. PERIDEX [Concomitant]
     Active Substance: CHLORHEXIDINE GLUCONATE
  3. FENTANYL. [Concomitant]
     Active Substance: FENTANYL
  4. MIDAZOLAM. [Concomitant]
     Active Substance: MIDAZOLAM
  5. CISATRACURIUM. [Concomitant]
     Active Substance: CISATRACURIUM
  6. NOREPINEPHRINE. [Concomitant]
     Active Substance: NOREPINEPHRINE
  7. CEFTAROLINE [Concomitant]
     Active Substance: CEFTAROLINE
  8. VASOPRESSIN. [Concomitant]
     Active Substance: VASOPRESSIN
  9. ASCORBIC ACID. [Concomitant]
     Active Substance: ASCORBIC ACID
  10. INSULIN LISPRO [Concomitant]
     Active Substance: INSULIN LISPRO
  11. CALTRATE+ D [Concomitant]
  12. ZINC SULFATE. [Concomitant]
     Active Substance: ZINC SULFATE
  13. FAMOTIDINE. [Concomitant]
     Active Substance: FAMOTIDINE
  14. MICAFUNGIN VALACYCLOVIR [Concomitant]
  15. ASPIRIN. [Concomitant]
     Active Substance: ASPIRIN
  16. METHYLPREDNISOLONE. [Concomitant]
     Active Substance: METHYLPREDNISOLONE
  17. APIXABAN [Concomitant]
     Active Substance: APIXABAN
  18. DOPAMINE [Concomitant]
     Active Substance: DOPAMINE HYDROCHLORIDE

REACTIONS (15)
  - Haemoglobin decreased [None]
  - Blood potassium decreased [None]
  - PO2 increased [None]
  - Haematocrit decreased [None]
  - Blood calcium decreased [None]
  - Bradycardia [None]
  - Blood albumin decreased [None]
  - Blood urea increased [None]
  - Blood chloride increased [None]
  - Platelet count decreased [None]
  - PCO2 decreased [None]
  - Blood glucose increased [None]
  - Blood pH increased [None]
  - Blood magnesium decreased [None]
  - Red blood cell count decreased [None]
